FAERS Safety Report 6264210-3 (Version None)
Quarter: 2009Q3

REPORT INFORMATION
  Report Type: 
  Country: None (occurrence: None)
  Receive Date: 20090710
  Receipt Date: 20090625
  Transmission Date: 20100115
  Serious: Yes (Hospitalization)
  Sender: FDA-Public Use
  Company Number: FR-GENENTECH-285666

PATIENT
  Sex: Male

DRUGS (6)
  1. RITUXIMAB [Suspect]
     Indication: NON-HODGKIN'S LYMPHOMA
     Dosage: 660 MG, UNK
     Route: 042
     Dates: start: 20080226, end: 20080320
  2. METHOTREXATE [Suspect]
     Indication: NON-HODGKIN'S LYMPHOMA
     Dosage: 5300 MG, UNK
     Route: 042
     Dates: start: 20080227, end: 20080315
  3. ONCOVIN [Suspect]
     Indication: NON-HODGKIN'S LYMPHOMA
     Dosage: 2 MG, UNK
     Route: 042
     Dates: start: 20080227, end: 20080320
  4. PREDNISOLONE [Suspect]
     Indication: NON-HODGKIN'S LYMPHOMA
     Dosage: 73300 MG, UNK
     Route: 042
     Dates: start: 20080227, end: 20080319
  5. ENDOXAN [Suspect]
     Indication: NON-HODGKIN'S LYMPHOMA
     Dosage: 880 MG, UNK
     Route: 042
     Dates: start: 20080228, end: 20080318
  6. DOXORUBICIN HCL [Suspect]
     Indication: NON-HODGKIN'S LYMPHOMA
     Dosage: 106 MG, UNK
     Route: 042
     Dates: start: 20080228, end: 20080316

REACTIONS (2)
  - PALMAR-PLANTAR ERYTHRODYSAESTHESIA SYNDROME [None]
  - STAPHYLOCOCCAL SEPSIS [None]
